FAERS Safety Report 12579217 (Version 1)
Quarter: 2016Q3

REPORT INFORMATION
  Report Type: Spontaneous
  Country: US (occurrence: US)
  Receive Date: 20160721
  Receipt Date: 20160721
  Transmission Date: 20161109
  Serious: No
  Sender: FDA-Public Use
  Company Number: US-TRIS PHARMA, INC.-1055350

PATIENT
  Age: 71 Year
  Sex: Female
  Weight: 68.18 kg

DRUGS (5)
  1. ANASTROZOLE. [Concomitant]
     Active Substance: ANASTROZOLE
  2. DEXTROMETHORPHAN POLISTIREX ER OS 6 MG/ML [Suspect]
     Active Substance: DEXTROMETHORPHAN HYDROBROMIDE
     Indication: COUGH
     Route: 048
     Dates: start: 20151127, end: 20151127
  3. AMLODIPINE [Concomitant]
     Active Substance: AMLODIPINE BESYLATE
  4. VITAMIN D [Concomitant]
     Active Substance: CHOLECALCIFEROL
  5. CALCIUM CHEW [Concomitant]

REACTIONS (2)
  - Drug ineffective [None]
  - Dyspnoea [Recovered/Resolved]

NARRATIVE: CASE EVENT DATE: 20151127
